FAERS Safety Report 20704502 (Version 2)
Quarter: 2022Q2

REPORT INFORMATION
  Report Type: Spontaneous
  Country: CA (occurrence: CA)
  Receive Date: 20220413
  Receipt Date: 20220422
  Transmission Date: 20220721
  Serious: Yes (Other)
  Sender: FDA-Public Use
  Company Number: CA-OCTA-GAM13622CA

PATIENT
  Age: 4 Year
  Sex: Male
  Weight: 30 kg

DRUGS (1)
  1. OCTAGAM IMMUNE GLOBULIN (HUMAN) [Suspect]
     Active Substance: HUMAN IMMUNOGLOBULIN G
     Indication: Kawasaki^s disease
     Route: 041
     Dates: start: 20220328, end: 20220328

REACTIONS (3)
  - Haemolytic transfusion reaction [Recovered/Resolved]
  - Anti A antibody positive [Recovered/Resolved]
  - Red blood cell spherocytes present [Recovered/Resolved]

NARRATIVE: CASE EVENT DATE: 20220330
